FAERS Safety Report 10039910 (Version 1)
Quarter: 2014Q1

REPORT INFORMATION
  Report Type: Spontaneous
  Country: US (occurrence: US)
  Receive Date: 20140326
  Receipt Date: 20140326
  Transmission Date: 20141002
  Serious: Yes (Other)
  Sender: FDA-Public Use
  Company Number: US-PFIZER INC-2014083428

PATIENT
  Sex: Female

DRUGS (2)
  1. GABAPENTIN [Suspect]
     Dosage: 300 MG, UNK
     Route: 048
     Dates: start: 2014, end: 2014
  2. GABAPENTIN [Suspect]
     Dosage: 600 MG, UNK
     Route: 048
     Dates: start: 2014

REACTIONS (5)
  - Mental disorder [Unknown]
  - Motor dysfunction [Unknown]
  - Nervous system disorder [Unknown]
  - Aggression [Unknown]
  - Asthenia [Unknown]
